FAERS Safety Report 25975395 (Version 1)
Quarter: 2025Q4

REPORT INFORMATION
  Report Type: Spontaneous
  Country: US (occurrence: US)
  Receive Date: 20251029
  Receipt Date: 20251029
  Transmission Date: 20260117
  Serious: No
  Sender: FRESENIUS KABI
  Company Number: US-FreseniusKabi-FK202514117

PATIENT
  Age: 59 Year
  Sex: Female
  Weight: 89.36 kg

DRUGS (1)
  1. ADALIMUMAB-AACF [Suspect]
     Active Substance: ADALIMUMAB-AACF
     Indication: Rheumatoid arthritis
     Dosage: INJECTION?INJECT 1 PEN UNDER THE SKIN EVERY 14 DAYS

REACTIONS (2)
  - Product dose omission issue [Unknown]
  - Rheumatoid arthritis [Unknown]
